FAERS Safety Report 16336346 (Version 2)
Quarter: 2019Q2

REPORT INFORMATION
  Report Type: Report from Study
  Country: IT (occurrence: IT)
  Receive Date: 20190521
  Receipt Date: 20190524
  Transmission Date: 20190711
  Serious: Yes (Other)
  Sender: FDA-Public Use
  Company Number: IT-ROCHE-2319613

PATIENT

DRUGS (3)
  1. RITUXIMAB. [Suspect]
     Active Substance: RITUXIMAB
     Indication: CHRONIC LYMPHOCYTIC LEUKAEMIA
     Dosage: 375 MG/M2 ON DAY 1 OF CYCLE 1 AND 500 MG/M2 ON DAY 1 OF CYCLES 2-6.
     Route: 042
  2. IBRUTINIB [Suspect]
     Active Substance: IBRUTINIB
     Indication: CHRONIC LYMPHOCYTIC LEUKAEMIA
     Route: 065
  3. BENDAMUSTINE [Suspect]
     Active Substance: BENDAMUSTINE
     Indication: CHRONIC LYMPHOCYTIC LEUKAEMIA
     Dosage: 70 MG/M2 ON DAYS 2-3 OF CYCLE 1 AND DAYS 1-2 OF CYCLES 2-6.
     Route: 042

REACTIONS (25)
  - Diarrhoea [Unknown]
  - Rash [Unknown]
  - Infusion related reaction [Unknown]
  - Dyspnoea [Unknown]
  - Pyrexia [Unknown]
  - Vomiting [Unknown]
  - Pneumonia [Unknown]
  - Arthralgia [Unknown]
  - Fatigue [Unknown]
  - Constipation [Unknown]
  - Febrile neutropenia [Unknown]
  - Muscle spasms [Unknown]
  - Bronchitis [Unknown]
  - Oedema peripheral [Unknown]
  - Neutropenia [Unknown]
  - Nausea [Unknown]
  - Chills [Unknown]
  - Thrombocytopenia [Unknown]
  - Anaemia [Unknown]
  - Back pain [Unknown]
  - Upper respiratory tract infection [Unknown]
  - Headache [Unknown]
  - Decreased appetite [Unknown]
  - Abdominal pain [Unknown]
  - Hyperuricaemia [Unknown]
